FAERS Safety Report 10445910 (Version 2)
Quarter: 2015Q1

REPORT INFORMATION
  Report Type: Spontaneous
  Country: US (occurrence: US)
  Receive Date: 20140910
  Receipt Date: 20150121
  Transmission Date: 20150720
  Serious: Yes (Death, Hospitalization, Other)
  Sender: FDA-Public Use
  Company Number: US-009507513-1409USA004478

PATIENT
  Sex: Female
  Weight: 103.4 kg

DRUGS (2)
  1. JANUMET [Suspect]
     Active Substance: METFORMIN HYDROCHLORIDE\SITAGLIPTIN PHOSPHATE
     Indication: TYPE 2 DIABETES MELLITUS
     Dosage: 50-1000MG
     Route: 048
     Dates: start: 20070808
  2. BYETTA [Suspect]
     Active Substance: EXENATIDE
     Indication: TYPE 2 DIABETES MELLITUS
     Dosage: 10MCG/0.04ML INJ
     Route: 058
     Dates: start: 20061117, end: 20130414

REACTIONS (17)
  - Hepatocellular carcinoma [Unknown]
  - Disease complication [Fatal]
  - Malnutrition [Unknown]
  - Portal hypertension [None]
  - Acute kidney injury [Not Recovered/Not Resolved]
  - Non-alcoholic steatohepatitis [Unknown]
  - Thrombocytopenia [Unknown]
  - Pancreatic carcinoma metastatic [Fatal]
  - Malignant ascites [Unknown]
  - Hysterosalpingo-oophorectomy [Unknown]
  - Anaemia of chronic disease [Not Recovered/Not Resolved]
  - Septic shock [Unknown]
  - Cholestasis [Unknown]
  - Renal cyst [Unknown]
  - Hepatic cirrhosis [Unknown]
  - Hyperglycaemia [Unknown]
  - Diabetic neuropathy [None]

NARRATIVE: CASE EVENT DATE: 201310
